FAERS Safety Report 6767603-0 (Version None)
Quarter: 2010Q2

REPORT INFORMATION
  Report Type: 
  Country: None (occurrence: None)
  Receive Date: 20100614
  Receipt Date: 20100609
  Transmission Date: 20101027
  Serious: Yes (Death)
  Sender: FDA-Public Use
  Company Number: PHHY2009CA18312

PATIENT
  Sex: Male

DRUGS (2)
  1. ACLASTA [Suspect]
     Indication: OSTEOPOROSIS
     Dosage: UNK
     Route: 042
     Dates: start: 20080527
  2. ACLASTA [Suspect]
     Dosage: UNK
     Route: 042
     Dates: start: 20091015

REACTIONS (2)
  - DRUG INEFFECTIVE [None]
  - LYMPHOMA [None]
